FAERS Safety Report 6940412-5 (Version None)
Quarter: 2010Q3

REPORT INFORMATION
  Report Type: 
  Country: None (occurrence: None)
  Receive Date: 20100825
  Receipt Date: 20100813
  Transmission Date: 20110219
  Serious: Yes (Hospitalization)
  Sender: FDA-Public Use
  Company Number: CA-ELI_LILLY_AND_COMPANY-CA_030305830

PATIENT
  Sex: Female
  Weight: 35.6 kg

DRUGS (1)
  1. SOMATROPIN [Suspect]
     Indication: TURNER'S SYNDROME
     Dosage: 1.6 MG, DAILY (1/D)
     Route: 058
     Dates: start: 20020322, end: 20030120

REACTIONS (2)
  - ADENOIDAL HYPERTROPHY [None]
  - SLEEP APNOEA SYNDROME [None]
